FAERS Safety Report 16222945 (Version 2)
Quarter: 2019Q2

REPORT INFORMATION
  Report Type: Spontaneous
  Country: US (occurrence: US)
  Receive Date: 20190422
  Receipt Date: 20190624
  Transmission Date: 20190711
  Serious: Yes (Other)
  Sender: FDA-Public Use
  Company Number: US-SA-2019SA103743

PATIENT
  Age: 67 Year
  Sex: Female
  Weight: 92.5 kg

DRUGS (8)
  1. NEOSAR [Concomitant]
     Active Substance: CYCLOPHOSPHAMIDE
  2. PANTOPRAZOLE [Concomitant]
     Active Substance: PANTOPRAZOLE
     Dosage: UNK
     Dates: start: 1993
  3. PRAVASTATIN. [Concomitant]
     Active Substance: PRAVASTATIN
     Dosage: UNK
     Dates: start: 1993
  4. FUROSEMIDE. [Concomitant]
     Active Substance: FUROSEMIDE
     Dosage: UNK
     Dates: start: 1993
  5. KLOR-CON [Concomitant]
     Active Substance: POTASSIUM CHLORIDE
     Dosage: UNK
     Dates: start: 1993
  6. TAXOTERE [Suspect]
     Active Substance: DOCETAXEL
     Indication: BREAST CANCER FEMALE
     Dosage: 150 MG, Q3W
     Route: 042
     Dates: start: 20100510, end: 20100510
  7. ATENOLOL. [Concomitant]
     Active Substance: ATENOLOL
     Dosage: UNK
     Dates: start: 1993
  8. TAXOTERE [Suspect]
     Active Substance: DOCETAXEL
     Dosage: 150 MG, Q3W
     Route: 042
     Dates: start: 20100823, end: 20100823

REACTIONS (2)
  - Psychological trauma [Unknown]
  - Alopecia [Not Recovered/Not Resolved]

NARRATIVE: CASE EVENT DATE: 20100525
